FAERS Safety Report 9177410 (Version 1)
Quarter: 2013Q1

REPORT INFORMATION
  Report Type: Spontaneous
  Country: US (occurrence: US)
  Receive Date: 20130321
  Receipt Date: 20130321
  Transmission Date: 20140127
  Serious: Yes (Hospitalization)
  Sender: FDA-Public Use
  Company Number: PHEH2013US006356

PATIENT
  Age: 76 Year
  Sex: Female

DRUGS (1)
  1. AFINITOR [Suspect]
     Dosage: 10 MG, QD
     Route: 048
     Dates: end: 20130130

REACTIONS (4)
  - Dehydration [Not Recovered/Not Resolved]
  - Vertigo [Not Recovered/Not Resolved]
  - Metastases to liver [Not Recovered/Not Resolved]
  - Liver function test abnormal [Unknown]
